FAERS Safety Report 4554372-8 (Version None)
Quarter: 2005Q1

REPORT INFORMATION
  Report Type: 
  Country: None (occurrence: None)
  Receive Date: 20041227
  Receipt Date: 20041004
  Transmission Date: 20050727
  Serious: No
  Sender: FDA-Public Use
  Company Number: 04P-163-0275960-00

PATIENT
  Age: 53 Year
  Sex: Female
  Weight: 68.9467 kg

DRUGS (4)
  1. HUMIRA 40 MG/ 0.8 ML PRE-FILLED SYRINGE (HUMIRA) (ADALIMUMAB) (ADALIMU [Suspect]
     Indication: RHEUMATOID ARTHRITIS
     Dosage: 40 MG, 1 IN 2 WK, SUBCUTANEOUS
     Route: 058
     Dates: start: 20031201, end: 20041004
  2. ATENOLOL [Concomitant]
  3. PREDNISONE [Concomitant]
  4. METHOTREXATE [Concomitant]

REACTIONS (1)
  - NASOPHARYNGITIS [None]
